FAERS Safety Report 15506214 (Version 3)
Quarter: 2019Q1

REPORT INFORMATION
  Report Type: Spontaneous
  Country: PL (occurrence: PL)
  Receive Date: 20181016
  Receipt Date: 20190121
  Transmission Date: 20190417
  Serious: Yes (Life-Threatening, Other)
  Sender: FDA-Public Use
  Company Number: PL-MYLANLABS-2018M1074016

PATIENT
  Age: 74 Year
  Sex: Female

DRUGS (17)
  1. PREDNISONE. [Suspect]
     Active Substance: PREDNISONE
     Dosage: 0.5 MG/KG
     Dates: start: 2017, end: 2017
  2. OMEPRAZOLE. [Concomitant]
     Active Substance: OMEPRAZOLE
     Indication: PRODUCT USED FOR UNKNOWN INDICATION
     Dosage: UNK
     Route: 065
  3. TIMONACIC [Concomitant]
     Active Substance: TIMONACIC
  4. GEMCITABINE [Concomitant]
     Active Substance: GEMCITABINE\GEMCITABINE HYDROCHLORIDE
  5. PEMETREXED. [Suspect]
     Active Substance: PEMETREXED
     Indication: SQUAMOUS CELL CARCINOMA OF LUNG
     Dosage: UNK
     Dates: start: 2017, end: 2017
  6. METHOTREXATE. [Concomitant]
     Active Substance: METHOTREXATE
     Dosage: 15 MILLIGRAM, QW
  7. CARBOPLATIN. [Suspect]
     Active Substance: CARBOPLATIN
     Indication: SQUAMOUS CELL CARCINOMA OF LUNG
  8. PEMETREXED. [Suspect]
     Active Substance: PEMETREXED
     Indication: CHEMOTHERAPY
  9. NADROPARIN [Concomitant]
     Active Substance: NADROPARIN
     Indication: PRODUCT USED FOR UNKNOWN INDICATION
     Dosage: UNK
     Route: 065
  10. POTASSIUM CHLORIDE. [Concomitant]
     Active Substance: POTASSIUM CHLORIDE
     Indication: PRODUCT USED FOR UNKNOWN INDICATION
     Dosage: UNK
     Route: 065
  11. METHOTREXATE. [Concomitant]
     Active Substance: METHOTREXATE
     Dosage: 10 MILLIGRAM, QW
  12. PACLITAXEL. [Suspect]
     Active Substance: PACLITAXEL
     Indication: CHEMOTHERAPY
     Dosage: UNK
     Route: 065
  13. PACLITAXEL. [Suspect]
     Active Substance: PACLITAXEL
     Indication: SQUAMOUS CELL CARCINOMA OF LUNG
  14. CARBOPLATIN. [Suspect]
     Active Substance: CARBOPLATIN
     Indication: CHEMOTHERAPY
     Dosage: UNK
     Route: 065
  15. PREDNISONE. [Suspect]
     Active Substance: PREDNISONE
     Indication: SUBACUTE CUTANEOUS LUPUS ERYTHEMATOSUS
     Dosage: 30 MILLIGRAM, QD
     Route: 065
     Dates: start: 2017, end: 2017
  16. PREDNISONE. [Suspect]
     Active Substance: PREDNISONE
     Dosage: 20 MILLIGRAM, QD
     Route: 065
     Dates: start: 2017, end: 2017
  17. 4-METHOXYCARBONYLTHIAZOLIDINIUM [Concomitant]
     Indication: PRODUCT USED FOR UNKNOWN INDICATION
     Dosage: UNK

REACTIONS (9)
  - Drug ineffective [Unknown]
  - Neutropenia [Recovered/Resolved]
  - Subacute cutaneous lupus erythematosus [Recovered/Resolved with Sequelae]
  - Skin plaque [Recovered/Resolved with Sequelae]
  - Skin discolouration [Unknown]
  - Erythema [Recovered/Resolved with Sequelae]
  - Skin lesion [Recovered/Resolved with Sequelae]
  - Cushing^s syndrome [Recovering/Resolving]
  - Skin exfoliation [Recovered/Resolved with Sequelae]

NARRATIVE: CASE EVENT DATE: 201705
